FAERS Safety Report 9212752 (Version 1)
Quarter: 2013Q2

REPORT INFORMATION
  Report Type: Spontaneous
  Country: US (occurrence: US)
  Receive Date: 20130405
  Receipt Date: 20130405
  Transmission Date: 20140414
  Serious: No
  Sender: FDA-Public Use
  Company Number: US-009507513-1304USA001748

PATIENT
  Age: 35 Year
  Sex: Female

DRUGS (2)
  1. SAPHRIS [Suspect]
     Indication: BIPOLAR DISORDER
     Dosage: 10 MG, BID
     Dates: start: 201301
  2. KLONOPIN [Concomitant]
     Dosage: UNK, PRN

REACTIONS (2)
  - Dysgeusia [Unknown]
  - Product quality issue [Unknown]
